FAERS Safety Report 5268002-3 (Version None)
Quarter: 2007Q1

REPORT INFORMATION
  Report Type: 
  Country: None (occurrence: None)
  Receive Date: 20061213
  Receipt Date: 20040719
  Transmission Date: 20070707
  Serious: Yes (Other)
  Sender: FDA-Public Use
  Company Number: 2004UW14961

PATIENT

DRUGS (1)
  1. IRESSA [Suspect]
     Indication: NON-SMALL CELL LUNG CANCER
     Dosage: 250 MG PO
     Route: 048
     Dates: end: 20040716

REACTIONS (4)
  - DIARRHOEA [None]
  - OEDEMA [None]
  - RASH [None]
  - WEIGHT DECREASED [None]
